FAERS Safety Report 5211697-0 (Version None)
Quarter: 2007Q1

REPORT INFORMATION
  Report Type: 
  Country: None (occurrence: None)
  Receive Date: 20070116
  Receipt Date: 20061228
  Transmission Date: 20070707
  Serious: Yes (Death, Other)
  Sender: FDA-Public Use
  Company Number: 2006US-05028

PATIENT
  Age: 18 Year
  Sex: Male

DRUGS (2)
  1. ISOTRETINOIN [Suspect]
     Indication: ACNE
     Dosage: 40 MG, QD; 40 MG, BID
     Dates: start: 20060706, end: 20060802
  2. ISOTRETINOIN [Suspect]
     Indication: ACNE
     Dosage: 40 MG, QD; 40 MG, BID
     Dates: start: 20060803

REACTIONS (1)
  - ROAD TRAFFIC ACCIDENT [None]
